FAERS Safety Report 6417819-8 (Version None)
Quarter: 2009Q4

REPORT INFORMATION
  Report Type: 
  Country: None (occurrence: None)
  Receive Date: 20091027
  Receipt Date: 20091027
  Transmission Date: 20100525
  Serious: Yes (Hospitalization)
  Sender: FDA-Public Use
  Company Number: None

PATIENT
  Age: 68 Year
  Sex: Male

DRUGS (19)
  1. DRONEDARONE HCL [Suspect]
     Indication: ATRIAL FIBRILLATION
     Dosage: 400MG PO BID
     Route: 048
     Dates: start: 20090814, end: 20090817
  2. WARFARIN SODIUM [Concomitant]
  3. DAPSONE [Concomitant]
  4. ESCITALOPRAM [Concomitant]
  5. FE GLUCONATE [Concomitant]
  6. LANTUS [Concomitant]
  7. LASIX [Concomitant]
  8. METOPROLOL [Concomitant]
  9. NOVOLOG [Concomitant]
  10. OXYCODONE [Concomitant]
  11. PLAVIX [Concomitant]
  12. POTASSIUM CHLORIDE [Concomitant]
  13. PREDNISONE [Concomitant]
  14. PREVACID [Concomitant]
  15. SPIRONOLACTONE [Concomitant]
  16. VIT D [Concomitant]
  17. APAP TAB [Concomitant]
  18. ZAROXOLYN [Concomitant]
  19. ZETIA [Concomitant]

REACTIONS (4)
  - BLOOD CREATININE INCREASED [None]
  - CARDIAC FAILURE [None]
  - ISCHAEMIC HEPATITIS [None]
  - RENAL DISORDER [None]
